FAERS Safety Report 25310754 (Version 2)
Quarter: 2025Q2

REPORT INFORMATION
  Report Type: Report from Study
  Country: CN (occurrence: CN)
  Receive Date: 20250514
  Receipt Date: 20250520
  Transmission Date: 20250717
  Serious: Yes (Hospitalization, Other)
  Sender: RIGEL PHARMACEUTICALS
  Company Number: CN-RIGEL Pharmaceuticals, INC-20250500046

PATIENT
  Age: 66 Year
  Sex: Male

DRUGS (3)
  1. PRALSETINIB [Suspect]
     Active Substance: PRALSETINIB
     Indication: Lung neoplasm malignant
     Dosage: 400 MG (4 CAPSULES) QD
     Route: 048
     Dates: start: 202211
  2. PRALSETINIB [Suspect]
     Active Substance: PRALSETINIB
     Dosage: 300 MG (3 CAPSULES) QD
     Route: 048
  3. PRALSETINIB [Suspect]
     Active Substance: PRALSETINIB
     Dosage: 200 MG (2 CAPSULES) QD
     Route: 048

REACTIONS (3)
  - Myocardial necrosis marker increased [Recovering/Resolving]
  - COVID-19 pneumonia [Unknown]
  - Blood pressure increased [Recovering/Resolving]
